FAERS Safety Report 18624842 (Version 6)
Quarter: 2021Q2

REPORT INFORMATION
  Report Type: Spontaneous
  Country: BE (occurrence: BE)
  Receive Date: 20201216
  Receipt Date: 20210629
  Transmission Date: 20210717
  Serious: Yes (Other)
  Sender: FDA-Public Use
  Company Number: BE-TAKEDA-2020TUS049855

PATIENT
  Age: 12 Year
  Sex: Male
  Weight: 36 kg

DRUGS (54)
  1. ADVATE [Suspect]
     Active Substance: ANTIHEMOPHILIC FACTOR, HUMAN RECOMBINANT
     Dosage: 1 DOSE/UNITS, TID
     Route: 065
     Dates: start: 20201106
  2. ADVATE [Suspect]
     Active Substance: ANTIHEMOPHILIC FACTOR, HUMAN RECOMBINANT
     Dosage: 1 DOSE/UNITS, TID
     Route: 065
     Dates: start: 20201106
  3. ADVATE [Suspect]
     Active Substance: ANTIHEMOPHILIC FACTOR, HUMAN RECOMBINANT
     Dosage: 5 MILLILITER, 3/WEEK
     Route: 065
     Dates: start: 20201204
  4. ADVATE [Suspect]
     Active Substance: ANTIHEMOPHILIC FACTOR, HUMAN RECOMBINANT
     Dosage: 5 MILLILITER, 3/WEEK
     Route: 065
     Dates: start: 20201207
  5. ADVATE [Suspect]
     Active Substance: ANTIHEMOPHILIC FACTOR, HUMAN RECOMBINANT
     Dosage: 750 INTERNATIONAL UNIT, TID
     Route: 065
     Dates: start: 20201207
  6. ADVATE [Suspect]
     Active Substance: ANTIHEMOPHILIC FACTOR, HUMAN RECOMBINANT
     Dosage: 5 MILLILITER, 3/WEEK
     Route: 050
  7. ADVATE [Suspect]
     Active Substance: ANTIHEMOPHILIC FACTOR, HUMAN RECOMBINANT
     Dosage: 5 MILLILITER, 3/WEEK
     Route: 050
     Dates: start: 20210412
  8. ADVATE [Suspect]
     Active Substance: ANTIHEMOPHILIC FACTOR, HUMAN RECOMBINANT
     Dosage: 5 MILLILITER
     Route: 042
  9. ADVATE [Suspect]
     Active Substance: ANTIHEMOPHILIC FACTOR, HUMAN RECOMBINANT
     Dosage: 500 INTERNATIONAL UNIT
     Route: 042
  10. ADVATE [Suspect]
     Active Substance: ANTIHEMOPHILIC FACTOR, HUMAN RECOMBINANT
     Dosage: 500 INTERNATIONAL UNIT
     Route: 042
  11. ADVATE [Suspect]
     Active Substance: ANTIHEMOPHILIC FACTOR, HUMAN RECOMBINANT
     Dosage: 5 MILLILITER, 3/WEEK
     Route: 050
     Dates: start: 20151202
  12. ADVATE [Suspect]
     Active Substance: ANTIHEMOPHILIC FACTOR, HUMAN RECOMBINANT
     Dosage: 5 MILLILITER, 3/WEEK
     Route: 050
     Dates: start: 20151202
  13. ADVATE [Suspect]
     Active Substance: ANTIHEMOPHILIC FACTOR, HUMAN RECOMBINANT
     Dosage: 5 MILLILITER, 3/WEEK
     Route: 065
     Dates: start: 20201204
  14. ADVATE [Suspect]
     Active Substance: ANTIHEMOPHILIC FACTOR, HUMAN RECOMBINANT
     Dosage: 5 MILLILITER, 3/WEEK
     Route: 065
     Dates: start: 20201207
  15. ADVATE [Suspect]
     Active Substance: ANTIHEMOPHILIC FACTOR, HUMAN RECOMBINANT
     Dosage: 5 MILLILITER, 3/WEEK
     Route: 050
  16. ADVATE [Suspect]
     Active Substance: ANTIHEMOPHILIC FACTOR, HUMAN RECOMBINANT
     Dosage: 5 MILLILITER, 3/WEEK
     Route: 050
     Dates: start: 20151202
  17. ADVATE [Suspect]
     Active Substance: ANTIHEMOPHILIC FACTOR, HUMAN RECOMBINANT
     Dosage: 5 MILLILITER, 3/WEEK
     Route: 050
     Dates: start: 20210412
  18. ADVATE [Suspect]
     Active Substance: ANTIHEMOPHILIC FACTOR, HUMAN RECOMBINANT
     Dosage: 5 MILLILITER, 3/WEEK
     Route: 050
     Dates: start: 20210412
  19. ADVATE [Suspect]
     Active Substance: ANTIHEMOPHILIC FACTOR, HUMAN RECOMBINANT
     Dosage: 5 MILLILITER, 3/WEEK
     Route: 050
     Dates: start: 20210412
  20. ADVATE [Suspect]
     Active Substance: ANTIHEMOPHILIC FACTOR, HUMAN RECOMBINANT
     Dosage: 750 INTERNATIONAL UNIT
     Route: 065
  21. ADVATE [Suspect]
     Active Substance: ANTIHEMOPHILIC FACTOR, HUMAN RECOMBINANT
     Dosage: 750 INTERNATIONAL UNIT
     Route: 065
  22. ADVATE [Suspect]
     Active Substance: ANTIHEMOPHILIC FACTOR, HUMAN RECOMBINANT
     Dosage: 750 INTERNATIONAL UNIT
     Route: 042
     Dates: start: 20151202
  23. ADVATE [Suspect]
     Active Substance: ANTIHEMOPHILIC FACTOR, HUMAN RECOMBINANT
     Dosage: 750 INTERNATIONAL UNIT
     Route: 042
  24. ADVATE [Suspect]
     Active Substance: ANTIHEMOPHILIC FACTOR, HUMAN RECOMBINANT
     Indication: FACTOR VIII DEFICIENCY
     Dosage: 5 MILLILITER
     Route: 017
  25. ADVATE [Suspect]
     Active Substance: ANTIHEMOPHILIC FACTOR, HUMAN RECOMBINANT
     Indication: FACTOR VIII DEFICIENCY
     Dosage: 5 MILLILITER
     Route: 017
  26. ADVATE [Suspect]
     Active Substance: ANTIHEMOPHILIC FACTOR, HUMAN RECOMBINANT
     Dosage: 1 DOSE/UNITS, TID
     Route: 065
     Dates: start: 20201106
  27. ADVATE [Suspect]
     Active Substance: ANTIHEMOPHILIC FACTOR, HUMAN RECOMBINANT
     Dosage: 5 MILLILITER, 3/WEEK
     Route: 065
     Dates: start: 20201204
  28. ADVATE [Suspect]
     Active Substance: ANTIHEMOPHILIC FACTOR, HUMAN RECOMBINANT
     Dosage: 5 MILLILITER, 3/WEEK
     Route: 050
     Dates: start: 20151202
  29. ADVATE [Suspect]
     Active Substance: ANTIHEMOPHILIC FACTOR, HUMAN RECOMBINANT
     Dosage: 5 MILLILITER, 3/WEEK
     Route: 050
     Dates: start: 20151202
  30. ADVATE [Suspect]
     Active Substance: ANTIHEMOPHILIC FACTOR, HUMAN RECOMBINANT
     Dosage: 500 INTERNATIONAL UNIT
     Route: 042
  31. ADVATE [Suspect]
     Active Substance: ANTIHEMOPHILIC FACTOR, HUMAN RECOMBINANT
     Dosage: 1 DOSE/UNITS, TID
     Route: 065
     Dates: start: 20201106
  32. ADVATE [Suspect]
     Active Substance: ANTIHEMOPHILIC FACTOR, HUMAN RECOMBINANT
     Dosage: 5 MILLILITER, 3/WEEK
     Route: 050
  33. ADVATE [Suspect]
     Active Substance: ANTIHEMOPHILIC FACTOR, HUMAN RECOMBINANT
     Dosage: 5 MILLILITER, 3/WEEK
     Route: 050
     Dates: start: 20210412
  34. ADVATE [Suspect]
     Active Substance: ANTIHEMOPHILIC FACTOR, HUMAN RECOMBINANT
     Dosage: 750 INTERNATIONAL UNIT
     Route: 042
     Dates: start: 20151202
  35. ADVATE [Suspect]
     Active Substance: ANTIHEMOPHILIC FACTOR, HUMAN RECOMBINANT
     Dosage: 750 INTERNATIONAL UNIT, TID
     Route: 065
     Dates: start: 20201207
  36. ADVATE [Suspect]
     Active Substance: ANTIHEMOPHILIC FACTOR, HUMAN RECOMBINANT
     Dosage: 5 MILLILITER, 3/WEEK
     Route: 050
     Dates: start: 20210412
  37. ADVATE [Suspect]
     Active Substance: ANTIHEMOPHILIC FACTOR, HUMAN RECOMBINANT
     Dosage: 5 MILLILITER
     Route: 042
  38. ADVATE [Suspect]
     Active Substance: ANTIHEMOPHILIC FACTOR, HUMAN RECOMBINANT
     Dosage: 500 INTERNATIONAL UNIT
     Route: 042
  39. ADVATE [Suspect]
     Active Substance: ANTIHEMOPHILIC FACTOR, HUMAN RECOMBINANT
     Dosage: 750 INTERNATIONAL UNIT, TID
     Route: 065
     Dates: start: 20201207
  40. ADVATE [Suspect]
     Active Substance: ANTIHEMOPHILIC FACTOR, HUMAN RECOMBINANT
     Dosage: 5 MILLILITER, 3/WEEK
     Route: 050
     Dates: start: 20151202
  41. ADVATE [Suspect]
     Active Substance: ANTIHEMOPHILIC FACTOR, HUMAN RECOMBINANT
     Dosage: 750 INTERNATIONAL UNIT
     Route: 065
  42. ADVATE [Suspect]
     Active Substance: ANTIHEMOPHILIC FACTOR, HUMAN RECOMBINANT
     Dosage: 750 INTERNATIONAL UNIT
     Route: 042
     Dates: start: 20151202
  43. ADVATE [Suspect]
     Active Substance: ANTIHEMOPHILIC FACTOR, HUMAN RECOMBINANT
     Indication: FACTOR VIII DEFICIENCY
     Dosage: 5 MILLILITER
     Route: 017
  44. ADVATE [Suspect]
     Active Substance: ANTIHEMOPHILIC FACTOR, HUMAN RECOMBINANT
     Dosage: 1 DOSE/UNITS, TID
     Route: 065
     Dates: start: 20201106
  45. ADVATE [Suspect]
     Active Substance: ANTIHEMOPHILIC FACTOR, HUMAN RECOMBINANT
     Dosage: 1 DOSE/UNITS, TID
     Route: 065
     Dates: start: 20201106
  46. ADVATE [Suspect]
     Active Substance: ANTIHEMOPHILIC FACTOR, HUMAN RECOMBINANT
     Dosage: 5 MILLILITER, 3/WEEK
     Route: 065
     Dates: start: 20201207
  47. ADVATE [Suspect]
     Active Substance: ANTIHEMOPHILIC FACTOR, HUMAN RECOMBINANT
     Dosage: 5 MILLILITER, 3/WEEK
     Route: 050
     Dates: start: 20151202
  48. ADVATE [Suspect]
     Active Substance: ANTIHEMOPHILIC FACTOR, HUMAN RECOMBINANT
     Dosage: 5 MILLILITER, 3/WEEK
     Route: 050
     Dates: start: 20151202
  49. ADVATE [Suspect]
     Active Substance: ANTIHEMOPHILIC FACTOR, HUMAN RECOMBINANT
     Dosage: 5 MILLILITER, 3/WEEK
     Route: 050
     Dates: start: 20151202
  50. ADVATE [Suspect]
     Active Substance: ANTIHEMOPHILIC FACTOR, HUMAN RECOMBINANT
     Dosage: 5 MILLILITER
     Route: 042
  51. ADVATE [Suspect]
     Active Substance: ANTIHEMOPHILIC FACTOR, HUMAN RECOMBINANT
     Dosage: 750 INTERNATIONAL UNIT
     Route: 042
  52. ADVATE [Suspect]
     Active Substance: ANTIHEMOPHILIC FACTOR, HUMAN RECOMBINANT
     Dosage: 750 INTERNATIONAL UNIT
     Route: 042
  53. ADVATE [Suspect]
     Active Substance: ANTIHEMOPHILIC FACTOR, HUMAN RECOMBINANT
     Dosage: 500 INTERNATIONAL UNIT
     Route: 042
  54. ADVATE [Suspect]
     Active Substance: ANTIHEMOPHILIC FACTOR, HUMAN RECOMBINANT
     Dosage: 500 INTERNATIONAL UNIT
     Route: 042

REACTIONS (6)
  - Joint swelling [Recovering/Resolving]
  - Incorrect dose administered [Recovered/Resolved]
  - Haematoma [Recovering/Resolving]
  - Skin abrasion [Recovering/Resolving]
  - Peripheral swelling [Recovering/Resolving]
  - Injury [Recovering/Resolving]

NARRATIVE: CASE EVENT DATE: 20201109
